FAERS Safety Report 10339322 (Version 1)
Quarter: 2014Q3

REPORT INFORMATION
  Report Type: Spontaneous
  Country: DE (occurrence: DE)
  Receive Date: 20140724
  Receipt Date: 20140724
  Transmission Date: 20150326
  Serious: Yes (Death, Hospitalization)
  Sender: FDA-Public Use
  Company Number: DE-BAYER-2014-108421

PATIENT
  Age: 89 Year
  Sex: Female

DRUGS (1)
  1. ULTRAVIST [Suspect]
     Active Substance: IOPROMIDE
     Indication: COMPUTERISED TOMOGRAM ABDOMEN
     Dosage: 100 ML, ONCE
     Dates: start: 20140711, end: 20140711

REACTIONS (7)
  - Dyspnoea [Fatal]
  - Generalised erythema [Fatal]
  - Blood pressure immeasurable [Fatal]
  - Myocardial infarction [Fatal]
  - Respiratory rate decreased [Fatal]
  - Foaming at mouth [Fatal]
  - Feeling hot [Fatal]

NARRATIVE: CASE EVENT DATE: 20140711
